FAERS Safety Report 19911568 (Version 1)
Quarter: 2021Q4

REPORT INFORMATION
  Report Type: Spontaneous
  Country: US (occurrence: US)
  Receive Date: 20211001
  Receipt Date: 20211001
  Transmission Date: 20220303
  Serious: Yes (Death)
  Sender: FDA-Public Use
  Company Number: None

PATIENT
  Age: 33 Year
  Sex: Female

DRUGS (2)
  1. INTELENCE [Suspect]
     Active Substance: ETRAVIRINE
     Indication: HIV infection
     Dosage: ?          OTHER ROUTE:VIA JTUBE
     Dates: start: 20210830, end: 20210916
  2. KALETRA [Suspect]
     Active Substance: LOPINAVIR\RITONAVIR
     Indication: HIV infection
     Dosage: VIA JTUBE
     Dates: start: 20210830, end: 20210916

REACTIONS (1)
  - Death [None]

NARRATIVE: CASE EVENT DATE: 20210916
